FAERS Safety Report 13059822 (Version 1)
Quarter: 2016Q4

REPORT INFORMATION
  Report Type: Spontaneous
  Country: CN (occurrence: CN)
  Receive Date: 20161223
  Receipt Date: 20161223
  Transmission Date: 20170207
  Serious: Yes (Death)
  Sender: FDA-Public Use
  Company Number: CN-NOVOPROD-524048

PATIENT
  Age: 33 Year
  Sex: Female
  Weight: 51 kg

DRUGS (1)
  1. NOVORAPID [Suspect]
     Active Substance: INSULIN ASPART
     Indication: TYPE 1 DIABETES MELLITUS
     Dosage: 10 U, BID
     Route: 058
     Dates: start: 20161011, end: 20161013

REACTIONS (7)
  - Exposure during pregnancy [Recovered/Resolved]
  - Cardio-respiratory arrest [Fatal]
  - Coma [Fatal]
  - Discomfort [Fatal]
  - Dizziness [Fatal]
  - Hypoglycaemia [Fatal]
  - Death [Fatal]

NARRATIVE: CASE EVENT DATE: 20161011
